FAERS Safety Report 9337306 (Version 2)
Quarter: 2013Q2

REPORT INFORMATION
  Report Type: Spontaneous
  Country: SE (occurrence: SE)
  Receive Date: 20130607
  Receipt Date: 20130607
  Transmission Date: 20140414
  Serious: Yes (Hospitalization, Disabling)
  Sender: FDA-Public Use
  Company Number: SE-BAYER-2013-066855

PATIENT
  Age: 27 Year
  Sex: Female

DRUGS (6)
  1. VISANNE [Suspect]
     Dosage: UNK
     Dates: start: 20111011, end: 20121019
  2. MIRENA [Suspect]
     Dosage: 20 MCG/24HR, CONT
     Route: 015
     Dates: start: 200903
  3. QLAIRA [Suspect]
     Dosage: UNK
  4. CITALOPRAM [Concomitant]
     Indication: ENDOMETRIOSIS
     Dosage: UNK
     Dates: start: 201011
  5. CITALOPRAM [Concomitant]
     Indication: DEPRESSION
  6. CITALOPRAM [Concomitant]
     Indication: PAIN

REACTIONS (21)
  - Endometriosis [Not Recovered/Not Resolved]
  - Hirsutism [Recovered/Resolved]
  - Arthralgia [Not Recovered/Not Resolved]
  - Gait disturbance [Not Recovered/Not Resolved]
  - Myalgia [Not Recovered/Not Resolved]
  - Pain [Not Recovered/Not Resolved]
  - Weight increased [Not Recovered/Not Resolved]
  - Breast cyst [Not Recovered/Not Resolved]
  - Muscle spasms [Not Recovered/Not Resolved]
  - Migraine [Not Recovered/Not Resolved]
  - Headache [Not Recovered/Not Resolved]
  - Disturbance in attention [Not Recovered/Not Resolved]
  - Memory impairment [Not Recovered/Not Resolved]
  - Alopecia [Recovering/Resolving]
  - Hair texture abnormal [Recovering/Resolving]
  - Dyspnoea exertional [Not Recovered/Not Resolved]
  - Asthenia [Not Recovered/Not Resolved]
  - Acne [Recovered/Resolved]
  - Hyperhidrosis [Recovered/Resolved]
  - Onychoclasis [Recovered/Resolved]
  - Urinary incontinence [Not Recovered/Not Resolved]
